FAERS Safety Report 7371329-2 (Version None)
Quarter: 2011Q1

REPORT INFORMATION
  Report Type: 
  Country: None (occurrence: None)
  Receive Date: 20110322
  Receipt Date: 20110322
  Transmission Date: 20110831
  Serious: Yes (Life-Threatening)
  Sender: FDA-Public Use
  Company Number: None

PATIENT
  Sex: Female
  Weight: 81.6475 kg

DRUGS (1)
  1. MUCINEX [Suspect]
     Indication: BRONCHITIS
     Dosage: 1 TABLET EVERY 12 HOURS PO  ONE TIME ONLY!
     Route: 048
     Dates: start: 20110317, end: 20110317

REACTIONS (5)
  - BLOOD PRESSURE INCREASED [None]
  - NAUSEA [None]
  - ASTHENIA [None]
  - HEART RATE INCREASED [None]
  - DIARRHOEA [None]
